FAERS Safety Report 16414575 (Version 1)
Quarter: 2019Q2

REPORT INFORMATION
  Report Type: Spontaneous
  Country: US (occurrence: US)
  Receive Date: 20190611
  Receipt Date: 20190611
  Transmission Date: 20190711
  Serious: No
  Sender: FDA-Public Use
  Company Number: US-EMD SERONO-7095583

PATIENT
  Sex: Female
  Weight: 49 kg

DRUGS (2)
  1. MEGACE [Concomitant]
     Active Substance: MEGESTROL ACETATE
     Indication: WEIGHT DECREASED
  2. REBIF [Suspect]
     Active Substance: INTERFERON BETA-1A
     Indication: MULTIPLE SCLEROSIS
     Route: 058
     Dates: start: 20101216

REACTIONS (4)
  - Arthralgia [Unknown]
  - White blood cell count decreased [Unknown]
  - Injection site pain [Recovering/Resolving]
  - Balance disorder [Unknown]
